FAERS Safety Report 16232816 (Version 1)
Quarter: 2019Q2

REPORT INFORMATION
  Report Type: Spontaneous
  Country: US (occurrence: US)
  Receive Date: 20190424
  Receipt Date: 20190424
  Transmission Date: 20190711
  Serious: Yes (Other)
  Sender: FDA-Public Use
  Company Number: US-SA-2017SA256194

PATIENT
  Age: 41 Year
  Sex: Female
  Weight: 81.6 kg

DRUGS (9)
  1. ENALAPRIL [Concomitant]
     Active Substance: ENALAPRIL
     Dosage: UNK
     Dates: start: 201804
  2. TAXOTERE [Suspect]
     Active Substance: DOCETAXEL
     Dosage: 135 MG,Q3W
     Route: 042
     Dates: start: 20110817, end: 20110817
  3. PRAVASTATIN. [Concomitant]
     Active Substance: PRAVASTATIN
     Dosage: UNK
     Dates: start: 201804
  4. NEOSAR [Concomitant]
     Active Substance: CYCLOPHOSPHAMIDE
  5. CARVEDILOL. [Concomitant]
     Active Substance: CARVEDILOL
     Dosage: UNK
     Dates: start: 201804
  6. LATANOPROST. [Concomitant]
     Active Substance: LATANOPROST
     Dosage: UNK
     Dates: start: 201804
  7. TAXOTERE [Suspect]
     Active Substance: DOCETAXEL
     Indication: BREAST CANCER FEMALE
     Dosage: 135 MG,Q3W
     Route: 042
     Dates: start: 20110503, end: 20110503
  8. ADRIAMYCIN [Concomitant]
     Active Substance: DOXORUBICIN HYDROCHLORIDE
  9. AMLODIPINE [Concomitant]
     Active Substance: AMLODIPINE BESYLATE
     Dosage: UNK
     Dates: start: 201804

REACTIONS (1)
  - Alopecia [Recovering/Resolving]

NARRATIVE: CASE EVENT DATE: 201202
